FAERS Safety Report 4939604-6 (Version None)
Quarter: 2006Q1

REPORT INFORMATION
  Report Type: 
  Country: None (occurrence: None)
  Receive Date: 20060307
  Receipt Date: 20060224
  Transmission Date: 20060701
  Serious: Yes (Death, Other)
  Sender: FDA-Public Use
  Company Number: 2006026262

PATIENT
  Age: 81 Year
  Sex: Female
  Weight: 78.0187 kg

DRUGS (4)
  1. NEURONTIN [Suspect]
     Indication: POST HERPETIC NEURALGIA
     Dosage: ORAL
     Route: 048
     Dates: start: 20030101
  2. LYRICA [Suspect]
     Indication: ILL-DEFINED DISORDER
     Dates: start: 20060203
  3. VALTREX [Concomitant]
  4. TYLENOL W/ CODEINE [Concomitant]

REACTIONS (4)
  - FACIAL PALSY [None]
  - HERPES ZOSTER [None]
  - MYOCARDIAL INFARCTION [None]
  - PAIN [None]
